FAERS Safety Report 24273017 (Version 4)
Quarter: 2025Q1

REPORT INFORMATION
  Report Type: Report from Study
  Country: US (occurrence: US)
  Receive Date: 20240902
  Receipt Date: 20250102
  Transmission Date: 20250409
  Serious: Yes (Other)
  Sender: GLAXOSMITHKLINE
  Company Number: US-GLAXOSMITHKLINE-US2024AMR105758

PATIENT
  Sex: Female

DRUGS (1)
  1. NIRAPARIB [Suspect]
     Active Substance: NIRAPARIB
     Indication: Ovarian cancer
     Dosage: 100 MG, QD

REACTIONS (11)
  - Ovarian cancer recurrent [Unknown]
  - Dysgeusia [Unknown]
  - Taste disorder [Unknown]
  - Insomnia [Unknown]
  - Nausea [Unknown]
  - Heart rate increased [Unknown]
  - Constipation [Unknown]
  - Discomfort [Unknown]
  - Fatigue [Unknown]
  - Pain [Unknown]
  - Product use issue [Unknown]
